FAERS Safety Report 19718559 (Version 1)
Quarter: 2021Q3

REPORT INFORMATION
  Report Type: Spontaneous
  Country: US (occurrence: US)
  Receive Date: 20210818
  Receipt Date: 20210818
  Transmission Date: 20211014
  Serious: Yes (Life-Threatening, Hospitalization)
  Sender: FDA-Public Use
  Company Number: None

PATIENT
  Age: 65 Year
  Sex: Female
  Weight: 62.1 kg

DRUGS (7)
  1. ZELGINX [Concomitant]
  2. BUSPERONE [Concomitant]
  3. PROGESTERONE. [Concomitant]
     Active Substance: PROGESTERONE
  4. CELEBREX [Concomitant]
     Active Substance: CELECOXIB
  5. VITAMINS [Concomitant]
     Active Substance: VITAMINS
  6. CYMBASRA [Concomitant]
  7. REMICADE [Suspect]
     Active Substance: INFLIXIMAB
     Indication: RHEUMATOID ARTHRITIS
     Dosage: ?          QUANTITY:4 INJECTION(S);OTHER FREQUENCY:EVERY 2WEEKS;?
     Route: 042
     Dates: start: 20200530, end: 20201215

REACTIONS (3)
  - Alanine aminotransferase increased [None]
  - Aspartate aminotransferase increased [None]
  - Malaise [None]

NARRATIVE: CASE EVENT DATE: 20200513
